FAERS Safety Report 14769130 (Version 1)
Quarter: 2018Q2

REPORT INFORMATION
  Report Type: Spontaneous
  Country: US (occurrence: US)
  Receive Date: 20180417
  Receipt Date: 20180417
  Transmission Date: 20180711
  Serious: No
  Sender: FDA-Public Use
  Company Number: US-ELI_LILLY_AND_COMPANY-US201804004314

PATIENT
  Age: 32 Year
  Sex: Female

DRUGS (3)
  1. HUMULIN N [Suspect]
     Active Substance: INSULIN HUMAN
     Indication: GESTATIONAL DIABETES
     Dosage: UNK, UNKNOWN
     Route: 065
  2. NOVOLOG [Concomitant]
     Active Substance: INSULIN ASPART
     Indication: GESTATIONAL DIABETES
  3. BASAGLAR [Suspect]
     Active Substance: INSULIN GLARGINE
     Indication: GESTATIONAL DIABETES
     Dosage: UNK, UNKNOWN
     Route: 065

REACTIONS (1)
  - Maternal exposure during pregnancy [Unknown]
